FAERS Safety Report 9619756 (Version 2)
Quarter: 2014Q2

REPORT INFORMATION
  Report Type: Report from Study
  Country: MX (occurrence: MX)
  Receive Date: 20131014
  Receipt Date: 20140625
  Transmission Date: 20141212
  Serious: Yes (Hospitalization)
  Sender: FDA-Public Use
  Company Number: MX-ROCHE-1286893

PATIENT
  Age: 88 Year
  Sex: Female

DRUGS (5)
  1. LUCENTIS [Suspect]
     Indication: MACULAR DEGENERATION
     Route: 050
     Dates: start: 201109
  2. LUCENTIS [Suspect]
     Route: 050
     Dates: end: 201310
  3. CLOPIDOGREL [Concomitant]
     Route: 048
     Dates: start: 2006
  4. FUROSEMIDE [Concomitant]
     Indication: HYPERTENSION
     Route: 048
     Dates: start: 2009
  5. LEVOTHYROXINE [Concomitant]
     Indication: HYPOTHYROIDISM
     Route: 048
     Dates: start: 2011

REACTIONS (1)
  - Malaise [Recovered/Resolved]
